FAERS Safety Report 19239320 (Version 1)
Quarter: 2021Q2

REPORT INFORMATION
  Report Type: Other
  Country: CN (occurrence: CN)
  Receive Date: 20210510
  Receipt Date: 20210510
  Transmission Date: 20210717
  Serious: No
  Sender: FDA-Public Use
  Company Number: CN-ROCHE-2827285

PATIENT
  Age: 28 Year
  Sex: Female

DRUGS (3)
  1. OSELTAMIVIR [Suspect]
     Active Substance: OSELTAMIVIR
     Indication: COVID-19
     Route: 065
  2. INTERFERON [Suspect]
     Active Substance: INTERFERON
     Indication: COVID-19
     Route: 065
  3. CEFTOLOZANE;TAZOBACTAM [Suspect]
     Active Substance: CEFTOLOZANE SULFATE\TAZOBACTAM SODIUM
     Indication: COVID-19
     Route: 065

REACTIONS (3)
  - Maternal exposure during pregnancy [Unknown]
  - Anaemia [Unknown]
  - Off label use [Unknown]
